FAERS Safety Report 9221296 (Version 1)
Quarter: 2013Q2

REPORT INFORMATION
  Report Type: Spontaneous
  Country: US (occurrence: US)
  Receive Date: 20130410
  Receipt Date: 20130410
  Transmission Date: 20140414
  Serious: No
  Sender: FDA-Public Use
  Company Number: US-BIOGENIDEC-2013BI030357

PATIENT
  Sex: Female
  Weight: 66 kg

DRUGS (6)
  1. TYSABRI [Suspect]
     Indication: MULTIPLE SCLEROSIS
     Route: 042
     Dates: start: 201204
  2. LABETOLOL [Concomitant]
     Route: 048
     Dates: start: 1994
  3. PLENDIL [Concomitant]
     Route: 048
     Dates: start: 1994
  4. BENICAR [Concomitant]
     Route: 048
     Dates: start: 1994
  5. SYNTHROID [Concomitant]
     Route: 048
     Dates: start: 1980
  6. PREMPRO [Concomitant]
     Dates: start: 2001

REACTIONS (3)
  - Gait disturbance [Unknown]
  - Visual impairment [Unknown]
  - Hypertension [Unknown]
